FAERS Safety Report 11736498 (Version 1)
Quarter: 2015Q4

REPORT INFORMATION
  Report Type: Spontaneous
  Country: US (occurrence: US)
  Receive Date: 20151110
  Receipt Date: 20151110
  Transmission Date: 20160304
  Serious: No
  Sender: FDA-Public Use
  Company Number: US-ELI_LILLY_AND_COMPANY-US201206006126

PATIENT
  Age: 70 Year
  Sex: Female

DRUGS (1)
  1. FORTEO [Suspect]
     Active Substance: TERIPARATIDE
     Indication: OSTEOPOROSIS
     Dosage: 20 UG, QD

REACTIONS (14)
  - Rotator cuff syndrome [Unknown]
  - Malaise [Unknown]
  - Musculoskeletal disorder [Unknown]
  - Blood calcium increased [Unknown]
  - Dysstasia [Unknown]
  - Decreased appetite [Unknown]
  - Musculoskeletal pain [Unknown]
  - Sleep disorder due to a general medical condition [Unknown]
  - Middle insomnia [Unknown]
  - Muscular weakness [Unknown]
  - Thirst [Unknown]
  - Pain [Unknown]
  - Feeling abnormal [Unknown]
  - Neck pain [Unknown]
